FAERS Safety Report 8824940 (Version 1)
Quarter: 2012Q4

REPORT INFORMATION
  Report Type: 
  Country: US (occurrence: US)
  Receive Date: 20121004
  Receipt Date: 20121004
  Transmission Date: 20130627
  Serious: Yes (Death)
  Sender: FDA-Public Use
  Company Number: US-ROCHE-1136162

PATIENT
  Age: 87 Year
  Sex: Female

DRUGS (3)
  1. RITUXAN [Suspect]
     Indication: APLASIA PURE RED CELL
     Route: 042
     Dates: start: 20010104, end: 20010220
  2. RITUXAN [Suspect]
     Indication: MYASTHENIA GRAVIS
  3. FLUDARABINE [Concomitant]

REACTIONS (3)
  - Disease progression [Fatal]
  - Fatigue [Unknown]
  - Haemoglobin decreased [Unknown]
